FAERS Safety Report 4555362-1 (Version None)
Quarter: 2005Q1

REPORT INFORMATION
  Report Type: 
  Country: None (occurrence: None)
  Receive Date: 20050118
  Receipt Date: 20050118
  Transmission Date: 20050727
  Serious: Yes (Life-Threatening, Hospitalization)
  Sender: FDA-Public Use
  Company Number: None

PATIENT
  Age: 80 Year
  Sex: Female
  Weight: 78.6 kg

DRUGS (7)
  1. MEGACE [Suspect]
     Indication: POST PROCEDURAL COMPLICATION
     Dosage: 800MG DAILY
     Dates: start: 20041207
  2. MEGACE [Suspect]
     Indication: WEIGHT DECREASED
     Dosage: 800MG DAILY
     Dates: start: 20041207
  3. SENNA S [Concomitant]
  4. ATIVAN [Concomitant]
  5. PRILOSEC [Concomitant]
  6. COMPAZINE [Concomitant]
  7. LOVENOX [Concomitant]

REACTIONS (1)
  - PULMONARY EMBOLISM [None]
